FAERS Safety Report 12890260 (Version 1)
Quarter: 2016Q4

REPORT INFORMATION
  Report Type: Spontaneous
  Country: US (occurrence: US)
  Receive Date: 20161027
  Receipt Date: 20161027
  Transmission Date: 20170207
  Serious: No
  Sender: FDA-Public Use
  Company Number: US-MYLANLABS-2016M1003976

PATIENT
  Sex: Female

DRUGS (1)
  1. CARBIDOPA/LEVODOPA [Suspect]
     Active Substance: CARBIDOPA\LEVODOPA
     Dosage: UNK

REACTIONS (3)
  - Reaction to drug excipients [Unknown]
  - Foreign body [Unknown]
  - Dry mouth [Unknown]
